FAERS Safety Report 8022230-2 (Version None)
Quarter: 2011Q4

REPORT INFORMATION
  Report Type: 
  Country: None (occurrence: None)
  Receive Date: 20111229
  Receipt Date: 20111221
  Transmission Date: 20120403
  Serious: Yes (Death)
  Sender: FDA-Public Use
  Company Number: DKLU1075632

PATIENT
  Age: 32 Year
  Sex: Male

DRUGS (10)
  1. MORPHINE SULFATE [Suspect]
     Dosage: 80 MILLIGRAM (S)
  2. BENZODIAZEPINE DERIVATIVES (BENZODIAZEPINE DERIVATIVES) [Concomitant]
  3. TRILEPTAL [Concomitant]
  4. PROZAC [Concomitant]
  5. TEMAZEPAM [Concomitant]
  6. ZANAFLEX [Concomitant]
  7. TRANSTEC (BUPRENORPHINE) [Concomitant]
  8. ONFI [Suspect]
     Indication: CONVULSION
     Dosage: 20 MG MILLIGRAM(S)
  9. MORPHINE SULFATE [Suspect]
     Indication: PAIN
     Dosage: 20 MG (MILLIGRAM) (S)
     Dates: start: 20060117
  10. EPANUTIN (PHENYTOIN) [Concomitant]

REACTIONS (6)
  - EPILEPSY [None]
  - DRUG LEVEL ABOVE THERAPEUTIC [None]
  - FATIGUE [None]
  - TOXICITY TO VARIOUS AGENTS [None]
  - RESPIRATORY ARREST [None]
  - MULTIPLE DRUG OVERDOSE ACCIDENTAL [None]
